FAERS Safety Report 19412608 (Version 3)
Quarter: 2025Q2

REPORT INFORMATION
  Report Type: Spontaneous
  Country: CA (occurrence: CA)
  Receive Date: 20210614
  Receipt Date: 20250619
  Transmission Date: 20250717
  Serious: Yes (Other)
  Sender: MERCK SHARP & DOHME LLC
  Company Number: None

PATIENT
  Age: 51 Year
  Sex: Male

DRUGS (6)
  1. JANUVIA [Suspect]
     Active Substance: SITAGLIPTIN PHOSPHATE
     Indication: Diabetes mellitus
     Dosage: DOSE DESCRIPTION : 100 MG, 1 EVERY 24 HOURS?DAILY DOSE : 100 MILLIGRAM
     Route: 048
  2. METFORMIN [Suspect]
     Active Substance: METFORMIN HYDROCHLORIDE
     Indication: Diabetes mellitus
     Dosage: DOSE DESCRIPTION : 1 GRAM, 2 EVERY 1 (DAYS)?DAILY DOSE : 2 GRAM
     Route: 048
  3. METFORMIN [Suspect]
     Active Substance: METFORMIN HYDROCHLORIDE
     Indication: Diabetes mellitus
     Dosage: 1.0 GRAM, 1 EVERY 5 DAYS
     Route: 048
  4. GLICLAZIDE [Suspect]
     Active Substance: GLICLAZIDE
     Indication: Diabetes mellitus
     Dosage: DOSE DESCRIPTION : 30 MG, 1 EVERY 24 HOURS?DAILY DOSE : 30 MILLIGRAM
     Route: 048
  5. EMPAGLIFLOZIN [Suspect]
     Active Substance: EMPAGLIFLOZIN
     Indication: Diabetes mellitus
     Dosage: DOSE DESCRIPTION : 25 MG, 1 EVERY 24 HOURS?DAILY DOSE : 25 MILLIGRAM
     Route: 048
  6. LINAGLIPTIN [Suspect]
     Active Substance: LINAGLIPTIN
     Indication: Diabetes mellitus
     Dosage: 2.0 GRAM, 1 EVERY 1 DAYS
     Route: 048

REACTIONS (3)
  - Cerebrovascular accident [Unknown]
  - Lactic acidosis [Unknown]
  - Therapeutic product effect incomplete [Unknown]
